FAERS Safety Report 16859420 (Version 1)
Quarter: 2019Q3

REPORT INFORMATION
  Report Type: Spontaneous
  Country: FR (occurrence: FR)
  Receive Date: 20190927
  Receipt Date: 20190927
  Transmission Date: 20191005
  Serious: Yes (Hospitalization, Other)
  Sender: FDA-Public Use
  Company Number: FR-009507513-1909FRA008400

PATIENT
  Sex: Female
  Weight: 1.45 kg

DRUGS (5)
  1. CELESTENE 4MG/1ML [Suspect]
     Active Substance: BETAMETHASONE
     Dosage: 12 MILLIGRAM, UNK
     Route: 064
     Dates: start: 20190112, end: 20190113
  2. LOXEN [Concomitant]
     Dosage: 1 TABLET, 2 TIMES PER DAY
     Route: 064
     Dates: start: 20190112, end: 20190126
  3. TRANDATE [Concomitant]
     Active Substance: LABETALOL HYDROCHLORIDE
     Dosage: 1 TABLET, 2 TIMES PER DAY (ALSO REPORTED AS THREE TIMES A DAY (TID))
     Route: 064
     Dates: start: 20190120, end: 20190126
  4. SPASFON [Concomitant]
     Dosage: 2 TABLETS, 3 TIMES PER DAY
     Route: 064
     Dates: start: 20190112, end: 20190126
  5. ATARAX [Concomitant]
     Active Substance: HYDROXYZINE HYDROCHLORIDE
     Dosage: 1 TABLET, QPM, IF NEEDED
     Route: 064

REACTIONS (5)
  - Foetal exposure during pregnancy [Recovered/Resolved]
  - Growth retardation [Unknown]
  - Foetal cardiac disorder [Unknown]
  - Atrophy [Unknown]
  - Premature baby [Recovered/Resolved]

NARRATIVE: CASE EVENT DATE: 20190118
